FAERS Safety Report 6739752-4 (Version None)
Quarter: 2010Q2

REPORT INFORMATION
  Report Type: 
  Country: None (occurrence: None)
  Receive Date: 20100525
  Receipt Date: 20100513
  Transmission Date: 20101027
  Serious: No
  Sender: FDA-Public Use
  Company Number: US-B.I. PHARMACEUTICALS,INC./RIDGEFIELD-2010-BP-05525BP

PATIENT
  Sex: Male

DRUGS (1)
  1. CATAPRES-TTS-1 [Suspect]
     Dosage: 0.2 MG
     Route: 061

REACTIONS (1)
  - THERAPEUTIC REACTION TIME DECREASED [None]
